FAERS Safety Report 8471447-1 (Version None)
Quarter: 2012Q2

REPORT INFORMATION
  Report Type: 
  Country: None (occurrence: None)
  Receive Date: 20120627
  Receipt Date: 20120623
  Transmission Date: 20120825
  Serious: Yes (Other)
  Sender: FDA-Public Use
  Company Number: PHHY2012MX054786

PATIENT
  Sex: Female

DRUGS (3)
  1. KETOROLAC TROMETHAMINE [Concomitant]
     Indication: PAIN
     Dosage: 1 DF, UNK
  2. ZOLEDRONOC ACID [Suspect]
     Indication: OSTEOPOROSIS
     Dosage: 5 MG/100ML, EACH YEAR
     Route: 042
     Dates: start: 20090930
  3. BUMETANIDE [Concomitant]
     Dosage: 1 DF, UNK

REACTIONS (1)
  - HEPATIC CIRRHOSIS [None]
